FAERS Safety Report 19813353 (Version 4)
Quarter: 2024Q4

REPORT INFORMATION
  Report Type: Spontaneous
  Country: US (occurrence: US)
  Receive Date: 20210910
  Receipt Date: 20241015
  Transmission Date: 20250115
  Serious: Yes (Other)
  Sender: CELLTRION
  Company Number: US-CELLTRION INC.-2021US005086

PATIENT

DRUGS (1)
  1. INFLECTRA [Suspect]
     Active Substance: INFLIXIMAB-DYYB
     Indication: Proctitis ulcerative
     Dosage: UNK
     Route: 065

REACTIONS (2)
  - Hepatitis B virus test positive [Unknown]
  - Treatment delayed [Unknown]

NARRATIVE: CASE EVENT DATE: 20180621
